FAERS Safety Report 19682197 (Version 1)
Quarter: 2021Q3

REPORT INFORMATION
  Report Type: Spontaneous
  Country: US (occurrence: US)
  Receive Date: 20210811
  Receipt Date: 20210811
  Transmission Date: 20211014
  Serious: No
  Sender: FDA-Public Use
  Company Number: US-AMGEN-USASP2021092740

PATIENT
  Sex: Female

DRUGS (6)
  1. CALCIPOTRIENE. [Concomitant]
     Active Substance: CALCIPOTRIENE
  2. FLUOCINOLONE ACET [Concomitant]
  3. ASPIRIN [ACETYLSALICYLIC ACID] [Concomitant]
     Active Substance: ASPIRIN
  4. OTEZLA [Suspect]
     Active Substance: APREMILAST
     Indication: PSORIASIS
     Dosage: 30 MILLIGRAM, BID
     Route: 048
     Dates: start: 20160628
  5. TRIAMCINOLON [TRIAMCINOLONE ACETONIDE] [Concomitant]
  6. MULTI?VIT [Concomitant]
     Active Substance: VITAMINS

REACTIONS (1)
  - Fall [Not Recovered/Not Resolved]
